FAERS Safety Report 16181794 (Version 2)
Quarter: 2019Q2

REPORT INFORMATION
  Report Type: Report from Study
  Country: FR (occurrence: FR)
  Receive Date: 20190410
  Receipt Date: 20190517
  Transmission Date: 20190711
  Serious: Yes (Death, Hospitalization, Other)
  Sender: FDA-Public Use
  Company Number: FR-JAZZ-2019-FR-005030

PATIENT

DRUGS (1)
  1. DEFITELIO [Suspect]
     Active Substance: DEFIBROTIDE SODIUM
     Indication: VENOOCCLUSIVE DISEASE
     Dosage: 25 MG/KG/DAY
     Dates: start: 20170912, end: 20171004

REACTIONS (5)
  - Enterococcal sepsis [Fatal]
  - Graft versus host disease [Fatal]
  - Thrombotic microangiopathy [Fatal]
  - Multiple organ dysfunction syndrome [Fatal]
  - Meningitis [Fatal]

NARRATIVE: CASE EVENT DATE: 20170912
